FAERS Safety Report 12990499 (Version 2)
Quarter: 2016Q4

REPORT INFORMATION
  Report Type: Spontaneous
  Country: JP (occurrence: JP)
  Receive Date: 20161201
  Receipt Date: 20161206
  Transmission Date: 20170207
  Serious: Yes (Hospitalization, Other)
  Sender: FDA-Public Use
  Company Number: JP-BAYER-2016-080020

PATIENT
  Age: 74 Year
  Sex: Female
  Weight: 61 kg

DRUGS (7)
  1. CLEANAL [Concomitant]
     Active Substance: FUDOSTEINE
     Dosage: DAILY DOSE 600 MG
     Route: 048
     Dates: start: 20160329
  2. SELAPINA [Concomitant]
     Dosage: DAILY DOSE 3 G
     Route: 048
     Dates: start: 20160411
  3. STIVARGA [Suspect]
     Active Substance: REGORAFENIB
     Indication: COLORECTAL CANCER
     Dosage: 160 MG, QD (3 WEEKS ON AND 1 WEEK OFF)
     Route: 048
     Dates: start: 20160405, end: 20160412
  4. CALONAL [Concomitant]
     Active Substance: ACETAMINOPHEN
  5. CLARITHROMYCIN. [Concomitant]
     Active Substance: CLARITHROMYCIN
     Dosage: DAILY DOSE 400 MG
     Route: 048
     Dates: start: 20160329
  6. STIVARGA [Suspect]
     Active Substance: REGORAFENIB
     Indication: COLORECTAL CANCER
     Dosage: (3 WEEKS ON AND 1 WEEK OFF)120 MG, QD
     Route: 048
     Dates: start: 20160413, end: 20160414
  7. AMBROXOL HYDROCHLORIDE [Concomitant]
     Active Substance: AMBROXOL HYDROCHLORIDE
     Dosage: DAILY DOSE 45 MG
     Route: 048
     Dates: start: 20160329

REACTIONS (4)
  - Shock [Recovered/Resolved]
  - Dehydration [None]
  - Pyrexia [Recovered/Resolved]
  - Erythema multiforme [Recovered/Resolved]

NARRATIVE: CASE EVENT DATE: 20160411
